FAERS Safety Report 21373180 (Version 1)
Quarter: 2022Q3

REPORT INFORMATION
  Report Type: Spontaneous
  Country: US (occurrence: US)
  Receive Date: 20220924
  Receipt Date: 20220924
  Transmission Date: 20221026
  Serious: No
  Sender: FDA-Public Use
  Company Number: US-CTI BIOPHARMA-2022US02944

PATIENT

DRUGS (11)
  1. VONJO [Suspect]
     Active Substance: PACRITINIB
     Indication: Myelofibrosis
     Dosage: 100 MILLIGRAM, BID
     Route: 048
     Dates: start: 20220713
  2. BIOTIN [Concomitant]
     Active Substance: BIOTIN
     Indication: Product used for unknown indication
  3. COENZYME Q10 [Concomitant]
     Active Substance: DIETARY SUPPLEMENT\UBIDECARENONE
     Indication: Product used for unknown indication
  4. VITAMIN D NOS [Concomitant]
     Active Substance: VITAMIN D NOS
     Indication: Product used for unknown indication
  5. TOPROL XL [Concomitant]
     Active Substance: METOPROLOL SUCCINATE
     Indication: Product used for unknown indication
  6. OCUVITE MAX [Concomitant]
     Indication: Product used for unknown indication
  7. PRAVASTATIN [Concomitant]
     Active Substance: PRAVASTATIN
     Indication: Product used for unknown indication
  8. GLUCOSAMINE + CHONDORITIN [Concomitant]
     Indication: Product used for unknown indication
  9. FISH OIL [Concomitant]
     Active Substance: FISH OIL
  10. TYLENOL [Concomitant]
     Active Substance: ACETAMINOPHEN
  11. HYDROXYUREA [Concomitant]
     Active Substance: HYDROXYUREA

REACTIONS (1)
  - Skin warm [Not Recovered/Not Resolved]

NARRATIVE: CASE EVENT DATE: 20220701
